FAERS Safety Report 8879861 (Version 1)
Quarter: 2012Q4

REPORT INFORMATION
  Report Type: 
  Country: NL (occurrence: NL)
  Receive Date: 20121101
  Receipt Date: 20121101
  Transmission Date: 20130627
  Serious: Yes (Life-Threatening, Hospitalization, Other)
  Sender: FDA-Public Use
  Company Number: NL-AMGEN-NLDSP2012069678

PATIENT
  Age: 55 Year
  Sex: Male

DRUGS (2)
  1. ENBREL [Suspect]
     Indication: PSORIATIC ARTHROPATHY
     Dosage: 50 mg, weekly
     Dates: start: 20110927
  2. METHOTREXATE /00113802/ [Concomitant]
     Dosage: UNK

REACTIONS (3)
  - Road traffic accident [Recovered/Resolved]
  - Psoriatic arthropathy [Unknown]
  - Infection [Recovered/Resolved]
